FAERS Safety Report 4551874-5 (Version None)
Quarter: 2005Q1

REPORT INFORMATION
  Report Type: 
  Country: None (occurrence: None)
  Receive Date: 20050113
  Receipt Date: 20050104
  Transmission Date: 20050727
  Serious: Yes (Death, Life-Threatening, Other)
  Sender: FDA-Public Use
  Company Number: US-ABBOTT-05P-163-0285945-00

PATIENT
  Age: 60 Year
  Sex: Male

DRUGS (1)
  1. ULTANE [Suspect]
     Indication: GENERAL ANAESTHESIA
     Route: 055

REACTIONS (8)
  - ANAESTHETIC COMPLICATION [None]
  - BRADYCARDIA [None]
  - CARDIAC ARREST [None]
  - HYPERTHERMIA MALIGNANT [None]
  - HYPOTENSION [None]
  - MUSCLE HAEMORRHAGE [None]
  - PCO2 INCREASED [None]
  - PERITONEAL HAEMORRHAGE [None]
